FAERS Safety Report 7821436 (Version 3)
Quarter: 2014Q3

REPORT INFORMATION
  Report Type: Spontaneous
  Country: US (occurrence: US)
  Receive Date: 20110222
  Receipt Date: 20140919
  Transmission Date: 20150326
  Serious: Yes (Hospitalization, Other)
  Sender: FDA-Public Use
  Company Number: US-ROCHE-734319

PATIENT
  Age: 42 Year
  Sex: Male
  Weight: 127 kg

DRUGS (2)
  1. ACCUTANE [Suspect]
     Active Substance: ISOTRETINOIN
     Indication: ACNE
     Route: 065
     Dates: start: 1983, end: 1984
  2. ACCUTANE [Suspect]
     Active Substance: ISOTRETINOIN
     Route: 065
     Dates: start: 20000101, end: 20011231

REACTIONS (9)
  - Inflammatory bowel disease [Unknown]
  - Colitis ulcerative [Unknown]
  - Suicide attempt [Unknown]
  - Suicidal ideation [Unknown]
  - Gastrointestinal injury [Unknown]
  - Pulmonary embolism [Unknown]
  - Deep vein thrombosis [Unknown]
  - Anal abscess [Unknown]
  - Major depression [Unknown]

NARRATIVE: CASE EVENT DATE: 1983
